FAERS Safety Report 10467403 (Version 2)
Quarter: 2014Q4

REPORT INFORMATION
  Report Type: Spontaneous
  Country: US (occurrence: US)
  Receive Date: 20140922
  Receipt Date: 20141226
  Transmission Date: 20150528
  Serious: Yes (Hospitalization)
  Sender: FDA-Public Use
  Company Number: US-BAYER-2014-140684

PATIENT
  Age: 29 Year
  Sex: Female
  Weight: 77.98 kg

DRUGS (3)
  1. PRENATAL VITAMINS [Concomitant]
     Active Substance: VITAMINS
     Dosage: UNK
  2. MICROGESTIN [Concomitant]
     Active Substance: ETHINYL ESTRADIOL\NORETHINDRONE ACETATE
     Dosage: UNK
     Dates: start: 2005
  3. MIRENA [Suspect]
     Active Substance: LEVONORGESTREL
     Indication: CONTRACEPTION
     Dosage: 20 MCG/24HR, CONT
     Route: 015
     Dates: start: 20120109, end: 20120823

REACTIONS (14)
  - Uterine perforation [None]
  - Pelvic pain [None]
  - Anxiety [None]
  - Depressed mood [None]
  - Injury [None]
  - Medical device discomfort [None]
  - Internal injury [None]
  - Abdominal pain [None]
  - Fear [None]
  - Genital haemorrhage [None]
  - Emotional distress [None]
  - Device issue [None]
  - General physical health deterioration [None]
  - Depression [None]

NARRATIVE: CASE EVENT DATE: 201205
